FAERS Safety Report 5536542-5 (Version None)
Quarter: 2007Q4

REPORT INFORMATION
  Report Type: 
  Country: None (occurrence: None)
  Receive Date: 20071206
  Receipt Date: 20070925
  Transmission Date: 20080405
  Serious: Yes (Hospitalization)
  Sender: FDA-Public Use
  Company Number: US-AMGEN-STX237073

PATIENT
  Sex: Female
  Weight: 60.4 kg

DRUGS (13)
  1. ENBREL [Suspect]
     Indication: PSORIASIS
     Route: 058
     Dates: start: 20070403, end: 20070501
  2. ENBREL [Suspect]
     Indication: PSORIATIC ARTHROPATHY
  3. ADALIMUMAB [Concomitant]
     Dates: start: 20030601, end: 20070301
  4. XANAX [Concomitant]
  5. ACTONEL [Concomitant]
     Route: 048
     Dates: start: 20020501
  6. ATENOLOL [Concomitant]
     Route: 048
  7. ASPIRIN [Concomitant]
     Route: 048
  8. LEXAPRO [Concomitant]
     Route: 048
     Dates: start: 20030101
  9. CRESTOR [Concomitant]
     Route: 048
     Dates: start: 20060101
  10. NIFEDIPINE [Concomitant]
     Route: 048
     Dates: start: 20060101
  11. AVAPRO [Concomitant]
     Route: 048
     Dates: start: 20060101
  12. ADVAIR DISKUS 100/50 [Concomitant]
     Dates: start: 20030101
  13. COMBIVENT [Concomitant]
     Dates: start: 20030101

REACTIONS (1)
  - BREAST CANCER [None]
